FAERS Safety Report 12142647 (Version 2)
Quarter: 2016Q1

REPORT INFORMATION
  Report Type: Spontaneous
  Country: US (occurrence: US)
  Receive Date: 20160303
  Receipt Date: 20160322
  Transmission Date: 20160526
  Serious: No
  Sender: FDA-Public Use
  Company Number: US-BAYER-2016-042527

PATIENT
  Age: 41 Year
  Sex: Female

DRUGS (1)
  1. MIRENA [Suspect]
     Active Substance: LEVONORGESTREL
     Dosage: 20 MCG/24HR, CONT
     Route: 015
     Dates: start: 201411, end: 201511

REACTIONS (5)
  - Affect lability [None]
  - Weight increased [None]
  - Anger [None]
  - Increased appetite [None]
  - Depression [None]

NARRATIVE: CASE EVENT DATE: 201412
